FAERS Safety Report 8162894-6 (Version None)
Quarter: 2012Q1

REPORT INFORMATION
  Report Type: 
  Country: None (occurrence: None)
  Receive Date: 20120224
  Receipt Date: 20120222
  Transmission Date: 20120608
  Serious: No
  Sender: FDA-Public Use
  Company Number: US-PFIZER INC-2012043628

PATIENT
  Sex: Female
  Weight: 89.342 kg

DRUGS (17)
  1. XANAX [Concomitant]
     Indication: ANXIETY
     Dosage: UNK
  2. ZANTAC [Concomitant]
     Indication: GASTROOESOPHAGEAL REFLUX DISEASE
     Dosage: UNK
  3. COREG [Concomitant]
     Indication: HYPERTENSION
     Dosage: UNK
  4. CRESTOR [Concomitant]
     Indication: BLOOD CHOLESTEROL INCREASED
     Dosage: UNK
  5. CHANTIX [Suspect]
     Indication: SMOKING CESSATION THERAPY
     Dosage: UNK
     Route: 048
     Dates: start: 20110101, end: 20110101
  6. CYMBALTA [Concomitant]
     Indication: DEPRESSION
     Dosage: UNK
  7. METOCLOPRAMIDE [Concomitant]
     Indication: GASTROOESOPHAGEAL REFLUX DISEASE
     Dosage: UNK, 4X/DAY
  8. SYNTHROID [Concomitant]
     Dosage: UNK
  9. CHANTIX [Suspect]
     Dosage: 0.5 MG, 1X/DAY
     Dates: start: 20120201
  10. CYMBALTA [Concomitant]
     Dosage: UNK
  11. HYDROCODONE [Concomitant]
     Dosage: UNK
  12. ACETAMINOPHEN AND HYDROCODONE BITARTRATE [Concomitant]
     Dosage: 10/500 MG, 4X/DAY
  13. XANAX [Concomitant]
     Dosage: UNK
  14. ZYRTEC [Concomitant]
     Dosage: UNK, 3X/DAY
  15. CHANTIX [Suspect]
     Dosage: UNK
     Route: 048
     Dates: start: 20110101
  16. TRAZODONE [Concomitant]
     Indication: SLEEP DISORDER
     Dosage: UNK
  17. TRAZODONE [Concomitant]
     Dosage: UNK

REACTIONS (1)
  - ABNORMAL DREAMS [None]
